FAERS Safety Report 9784967 (Version 2)
Quarter: 2014Q1

REPORT INFORMATION
  Report Type: Report from Study
  Country: DE (occurrence: DE)
  Receive Date: 20131227
  Receipt Date: 20140120
  Transmission Date: 20141002
  Serious: Yes (Hospitalization, Other)
  Sender: FDA-Public Use
  Company Number: DE-ROCHE-1324471

PATIENT
  Age: 79 Year
  Sex: Female
  Weight: 39.8 kg

DRUGS (6)
  1. METHOXY POLYETHYLENE GLYCOL-EPOETIN BETA [Suspect]
     Indication: RENAL FAILURE CHRONIC
     Route: 058
     Dates: start: 20111201
  2. FUROSEMIDE [Suspect]
     Indication: HYPERTENSION
     Dosage: 40 (NO UNIT)
     Route: 048
     Dates: end: 20120307
  3. RAMIPRIL [Suspect]
     Indication: HYPERTENSION
     Dosage: 1-0-0
     Route: 048
     Dates: start: 20120211, end: 20120307
  4. MYCOPHENOLATE MOFETIL [Concomitant]
     Dosage: 1-0-1, 250 (NO UNIT)
     Route: 048
     Dates: start: 20061213
  5. CYCLOSPORIN [Concomitant]
     Dosage: 1-0-1, 25 (NO UNIT)
     Route: 048
     Dates: start: 19950801
  6. CALCIUMACETAT [Concomitant]
     Indication: RENAL FAILURE CHRONIC
     Dosage: 1-0-0, 500 (NO UNIT)
     Route: 048

REACTIONS (4)
  - Atrial fibrillation [Recovered/Resolved]
  - Renal failure acute [Recovered/Resolved]
  - Dehydration [Recovered/Resolved]
  - Vomiting [Recovered/Resolved]
